FAERS Safety Report 9057396 (Version 8)
Quarter: 2014Q1

REPORT INFORMATION
  Report Type: Spontaneous
  Country: US (occurrence: US)
  Receive Date: 20130204
  Receipt Date: 20140327
  Transmission Date: 20141002
  Serious: Yes (Hospitalization, Other)
  Sender: FDA-Public Use
  Company Number: US-009507513-1302USA000883

PATIENT
  Sex: Female
  Weight: 49.89 kg

DRUGS (9)
  1. FOSAMAX [Suspect]
     Indication: OSTEOPENIA
     Dosage: 70 MG, QW
     Route: 048
     Dates: start: 20021108
  2. FOSAMAX [Suspect]
     Indication: OSTEOPOROSIS PROPHYLAXIS
  3. ALENDRONATE SODIUM [Suspect]
     Indication: OSTEOPOROSIS PROPHYLAXIS
     Dosage: 70 MG, UNK
     Route: 048
     Dates: start: 20021108
  4. PREMARIN [Concomitant]
     Dosage: UNK
     Dates: start: 20000205, end: 20060124
  5. ALDACTONE TABLETS [Concomitant]
  6. LEVOTHROID [Concomitant]
     Indication: HYPOTHYROIDISM
     Dosage: 75 MICROGRAM, QD
     Route: 048
  7. RELAFEN [Concomitant]
     Indication: OSTEOARTHRITIS
     Dosage: 500 MG, BID
     Route: 048
  8. BETAPACE [Concomitant]
  9. POTASSIUM CHLORIDE [Concomitant]
     Dosage: 20 MEQ, UNK
     Dates: start: 20021030

REACTIONS (48)
  - Intramedullary rod insertion [Unknown]
  - Large intestine perforation [Unknown]
  - Sigmoidectomy [Unknown]
  - Renal failure chronic [Not Recovered/Not Resolved]
  - Cardiac pacemaker replacement [Unknown]
  - Cardiac pacemaker battery replacement [Unknown]
  - Hip fracture [Unknown]
  - Femur fracture [Unknown]
  - Foot fracture [Recovered/Resolved]
  - Low turnover osteopathy [Unknown]
  - Foot fracture [Unknown]
  - Foot fracture [Recovering/Resolving]
  - Osteoporosis [Unknown]
  - Senile osteoporosis [Unknown]
  - Fatigue [Unknown]
  - Skin irritation [Unknown]
  - Synovial cyst [Unknown]
  - Deep vein thrombosis [Unknown]
  - Dyslipidaemia [Unknown]
  - Cataract operation [Unknown]
  - Intraocular lens implant [Unknown]
  - Localised oedema [Unknown]
  - Migraine [Unknown]
  - Appendicectomy [Unknown]
  - Tonsillectomy [Unknown]
  - Bursitis [Recovering/Resolving]
  - Tenderness [Unknown]
  - Foot fracture [Unknown]
  - Thrombosis [Unknown]
  - Fracture nonunion [Unknown]
  - Memory impairment [Not Recovered/Not Resolved]
  - Gout [Unknown]
  - Foot fracture [Unknown]
  - Fluid retention [Unknown]
  - Atrial fibrillation [Unknown]
  - Foot operation [Unknown]
  - Hypertension [Unknown]
  - Cardiac failure congestive [Unknown]
  - Inappropriate schedule of drug administration [Unknown]
  - Lung hyperinflation [Unknown]
  - Laceration [Unknown]
  - Local swelling [Unknown]
  - Foot fracture [Unknown]
  - Cellulitis [Unknown]
  - Trigger finger [Unknown]
  - Gastrooesophageal reflux disease [Unknown]
  - Constipation [Unknown]
  - Metatarsalgia [Unknown]
